FAERS Safety Report 8501793-4 (Version None)
Quarter: 2012Q3

REPORT INFORMATION
  Report Type: 
  Country: None (occurrence: None)
  Receive Date: 20120705
  Receipt Date: 20120705
  Transmission Date: 20120928
  Serious: No
  Sender: FDA-Public Use
  Company Number: None

PATIENT
  Sex: Female
  Weight: 71.2147 kg

DRUGS (2)
  1. BUPROPION HCL [Suspect]
     Indication: ANXIETY
     Dosage: 150MG DAILY PO
     Route: 048
     Dates: start: 20110719, end: 20110831
  2. BUPROPION HCL [Suspect]
     Indication: DEPRESSION
     Dosage: 150MG DAILY PO
     Route: 048
     Dates: start: 20110719, end: 20110831

REACTIONS (2)
  - MIGRAINE [None]
  - NAUSEA [None]
